FAERS Safety Report 7330392-5 (Version None)
Quarter: 2011Q1

REPORT INFORMATION
  Report Type: 
  Country: None (occurrence: None)
  Receive Date: 20110304
  Receipt Date: 20110222
  Transmission Date: 20110831
  Serious: Yes (Hospitalization, Other)
  Sender: FDA-Public Use
  Company Number: 2006BI008218

PATIENT
  Age: 56 Year
  Sex: Female
  Weight: 87 kg

DRUGS (23)
  1. EFFEXOR [Concomitant]
     Indication: DEPRESSION
  2. PRILOSEC [Concomitant]
     Indication: GASTROOESOPHAGEAL REFLUX DISEASE
  3. TRICOR [Concomitant]
  4. AVONEX [Suspect]
     Route: 030
     Dates: start: 20050201, end: 20060601
  5. FOLIC ACID [Concomitant]
  6. AVONEX [Suspect]
     Indication: MULTIPLE SCLEROSIS
     Route: 030
     Dates: start: 19980101, end: 20050101
  7. SYNTHROID [Concomitant]
     Indication: HYPOTHYROIDISM
  8. BEXTRA [Concomitant]
  9. METHOTREXATE [Concomitant]
     Indication: RHEUMATOID ARTHRITIS
  10. MULTIVITAMIN [Concomitant]
  11. NEURONTIN [Concomitant]
  12. VITAMIN B-12 [Concomitant]
  13. NEXIUM [Concomitant]
  14. AVONEX [Suspect]
     Route: 030
  15. ULTRAM [Concomitant]
  16. PREDNISONE [Concomitant]
  17. FIBERCON [Concomitant]
  18. HORMONE REPLACEMENT THERAPY [Concomitant]
     Indication: HORMONE REPLACEMENT THERAPY
  19. PREMARIN [Concomitant]
  20. AZULFIDINE [Concomitant]
  21. ATENOLOL [Concomitant]
     Indication: HEART RATE INCREASED
  22. IMIPRAMINE [Concomitant]
  23. ASA [Concomitant]

REACTIONS (6)
  - BREAST CANCER [None]
  - VITAMIN B12 DECREASED [None]
  - MASTECTOMY [None]
  - BLOOD TRIGLYCERIDES INCREASED [None]
  - NEUROPATHY PERIPHERAL [None]
  - BODY HEIGHT DECREASED [None]
